FAERS Safety Report 5945655-5 (Version None)
Quarter: 2008Q4

REPORT INFORMATION
  Report Type: 
  Country: None (occurrence: None)
  Receive Date: 20081107
  Receipt Date: 20081029
  Transmission Date: 20090506
  Serious: Yes (Other)
  Sender: FDA-Public Use
  Company Number: US-PFIZER INC-2008092810

PATIENT
  Sex: Female
  Weight: 54.4 kg

DRUGS (5)
  1. CHANTIX [Suspect]
     Indication: SMOKING CESSATION THERAPY
     Dates: start: 20080101, end: 20080101
  2. POTASSIUM CHLORIDE [Concomitant]
  3. VICODIN [Concomitant]
  4. SOMA [Concomitant]
  5. OXYGEN [Concomitant]

REACTIONS (1)
  - SUICIDAL IDEATION [None]
